FAERS Safety Report 9609666 (Version 2)
Quarter: 2013Q4

REPORT INFORMATION
  Report Type: Spontaneous
  Country: US (occurrence: US)
  Receive Date: 20131009
  Receipt Date: 20131009
  Transmission Date: 20140711
  Serious: No
  Sender: FDA-Public Use
  Company Number: US-PURDUE-USA-2012-0095330

PATIENT
  Age: 65 Year
  Sex: Female

DRUGS (3)
  1. BUTRANS [Suspect]
     Indication: ARTHRALGIA
     Dosage: 10 MCG, WEEKLY
     Route: 062
     Dates: start: 201210
  2. BUTRANS [Suspect]
     Dosage: 20 MCG, UNK
     Route: 062
  3. VIMOVO [Concomitant]
     Indication: PROPHYLAXIS AGAINST GASTROINTESTINAL ULCER
     Dosage: 1 500/20 MG TABLET, BID
     Route: 048
     Dates: start: 201210

REACTIONS (5)
  - Application site infection [Unknown]
  - Application site odour [Not Recovered/Not Resolved]
  - Application site erythema [Recovered/Resolved]
  - Application site pruritus [Recovered/Resolved]
  - Fatigue [Unknown]
